FAERS Safety Report 15429331 (Version 1)
Quarter: 2018Q3

REPORT INFORMATION
  Report Type: Spontaneous
  Country: US (occurrence: US)
  Receive Date: 20180926
  Receipt Date: 20180926
  Transmission Date: 20181010
  Serious: No
  Sender: FDA-Public Use
  Company Number: US-PFIZER INC-2018386208

PATIENT
  Age: 36 Year
  Sex: Female
  Weight: 77.11 kg

DRUGS (3)
  1. CELECOXIB. [Suspect]
     Active Substance: CELECOXIB
     Indication: ARTHRALGIA
     Dosage: 200 MG, 1X/DAY (90 COUNT)
     Route: 048
     Dates: start: 20150321
  2. CELECOXIB. [Suspect]
     Active Substance: CELECOXIB
     Indication: MYALGIA
  3. CELECOXIB. [Suspect]
     Active Substance: CELECOXIB
     Indication: FIBROMYALGIA

REACTIONS (4)
  - Pain [Not Recovered/Not Resolved]
  - Hypermobility syndrome [Unknown]
  - Drug ineffective [Not Recovered/Not Resolved]
  - Spinal osteoarthritis [Not Recovered/Not Resolved]

NARRATIVE: CASE EVENT DATE: 2017
